FAERS Safety Report 7287822-7 (Version None)
Quarter: 2011Q1

REPORT INFORMATION
  Report Type: 
  Country: None (occurrence: None)
  Receive Date: 20110211
  Receipt Date: 20110208
  Transmission Date: 20110831
  Serious: No
  Sender: FDA-Public Use
  Company Number: US-PFIZER INC-2010104236

PATIENT
  Sex: Male

DRUGS (5)
  1. AMLODIPINE BESILATE [Concomitant]
     Indication: HYPERTENSION
     Dosage: 10 MG, 1X/DAY
  2. SIMVASTATIN [Concomitant]
     Indication: BLOOD CHOLESTEROL INCREASED
     Dosage: 40 MG, 1X/DAY
  3. DOXAZOSIN MESILATE [Concomitant]
     Indication: DYSURIA
     Dosage: 4 MG, 1X/DAY
  4. VIAGRA [Suspect]
     Dosage: 100 MG
  5. VIAGRA [Suspect]
     Indication: ERECTILE DYSFUNCTION
     Dosage: 50 MG, UNK
     Route: 048

REACTIONS (1)
  - DRUG INEFFECTIVE [None]
